FAERS Safety Report 8099022-1 (Version None)
Quarter: 2012Q1

REPORT INFORMATION
  Report Type: 
  Country: None (occurrence: None)
  Receive Date: 20120131
  Receipt Date: 20120130
  Transmission Date: 20120608
  Serious: Yes (Hospitalization, Other)
  Sender: FDA-Public Use
  Company Number: US-JNJFOC-20120103981

PATIENT
  Sex: Male
  Weight: 79.38 kg

DRUGS (9)
  1. QUINAPRIL [Concomitant]
     Indication: BLOOD PRESSURE
     Route: 048
     Dates: start: 20080101
  2. FAMOTIDINE [Suspect]
     Indication: DYSPEPSIA
     Route: 048
     Dates: start: 20110101, end: 20110101
  3. FAMOTIDINE [Suspect]
     Route: 048
  4. FENOFIBRATE [Concomitant]
     Indication: BLOOD CHOLESTEROL
     Route: 048
  5. LIPITOR [Concomitant]
     Indication: BLOOD CHOLESTEROL
     Route: 048
     Dates: start: 20060101
  6. LEVAQUIN [Suspect]
     Indication: SURGERY
     Route: 048
     Dates: start: 20110601, end: 20110625
  7. ACTOS [Concomitant]
     Indication: BLOOD CHOLESTEROL INCREASED
     Route: 048
     Dates: end: 20110101
  8. PLAVIX [Concomitant]
     Indication: BLOOD CHOLESTEROL INCREASED
     Route: 048
  9. ZETIA [Concomitant]
     Indication: BLOOD CHOLESTEROL
     Route: 048
     Dates: start: 20100101

REACTIONS (3)
  - HEART RATE INCREASED [None]
  - MYOCARDIAL INFARCTION [None]
  - TENDON PAIN [None]
